FAERS Safety Report 24220090 (Version 2)
Quarter: 2025Q1

REPORT INFORMATION
  Report Type: Spontaneous
  Country: US (occurrence: US)
  Receive Date: 20240817
  Receipt Date: 20250222
  Transmission Date: 20250408
  Serious: No
  Sender: SANOFI AVENTIS
  Company Number: US-SA-SAC20240814001223

PATIENT
  Age: 67 Year
  Sex: Male
  Weight: 68.94 kg

DRUGS (26)
  1. REZUROCK [Suspect]
     Active Substance: BELUMOSUDIL
     Indication: Chronic graft versus host disease
     Dosage: 200 MG, BID
     Route: 048
  2. REZUROCK [Suspect]
     Active Substance: BELUMOSUDIL
     Indication: Chronic lymphocytic leukaemia (in remission)
  3. PROTONIX [Concomitant]
     Active Substance: PANTOPRAZOLE SODIUM
  4. VENCLEXTA [Concomitant]
     Active Substance: VENETOCLAX
     Dosage: 100 MG, QD
  5. JAKAFI [Concomitant]
     Active Substance: RUXOLITINIB
     Dosage: 10 MG, BID
  6. ATORVASTATIN [Concomitant]
     Active Substance: ATORVASTATIN
  7. BECLOMETHASONE [Concomitant]
     Active Substance: BECLOMETHASONE
  8. BUDESONIDE [Concomitant]
     Active Substance: BUDESONIDE
  9. CRESEMBA [Concomitant]
     Active Substance: ISAVUCONAZONIUM SULFATE
  10. HYDRALAZINE [Concomitant]
     Active Substance: HYDRALAZINE HYDROCHLORIDE
  11. HYDROXYZINE [Concomitant]
     Active Substance: HYDROXYZINE HYDROCHLORIDE
  12. VITAMINS [Concomitant]
     Active Substance: VITAMINS
  13. ZYPREXA [Concomitant]
     Active Substance: OLANZAPINE
  14. VALTREX [Concomitant]
     Active Substance: VALACYCLOVIR HYDROCHLORIDE
  15. URSODIOL [Concomitant]
     Active Substance: URSODIOL
  16. TAMSULOSIN [Concomitant]
     Active Substance: TAMSULOSIN
  17. TACROLIMUS [Concomitant]
     Active Substance: TACROLIMUS
  18. SIROLIMUS [Concomitant]
     Active Substance: SIROLIMUS
  19. REMERON [Concomitant]
     Active Substance: MIRTAZAPINE
  20. PROCHLORPERAZINE [Concomitant]
     Active Substance: PROCHLORPERAZINE
  21. PREDNISONE [Concomitant]
     Active Substance: PREDNISONE
  22. ZOFRAN [Concomitant]
     Active Substance: ONDANSETRON HYDROCHLORIDE
  23. PYRIDIUM [Concomitant]
     Active Substance: PHENAZOPYRIDINE
  24. PREVYMIS [Concomitant]
     Active Substance: LETERMOVIR
  25. CLARITHROMYCIN [Concomitant]
     Active Substance: CLARITHROMYCIN
  26. LIDOPRO [CAPSAICIN;LIDOCAINE;MENTHOL;METHYL SALICYLATE] [Concomitant]

REACTIONS (4)
  - Malaise [Recovering/Resolving]
  - Rash [Not Recovered/Not Resolved]
  - Urticaria [Not Recovered/Not Resolved]
  - Product use in unapproved indication [Unknown]
